FAERS Safety Report 19073500 (Version 1)
Quarter: 2021Q1

REPORT INFORMATION
  Report Type: Spontaneous
  Country: GB (occurrence: GB)
  Receive Date: 20210330
  Receipt Date: 20210330
  Transmission Date: 20210420
  Serious: Yes (Disabling)
  Sender: FDA-Public Use
  Company Number: None

PATIENT
  Age: 25 Year
  Sex: Female
  Weight: 60 kg

DRUGS (2)
  1. PROTOPIC [Suspect]
     Active Substance: TACROLIMUS
     Indication: ECZEMA
     Dates: start: 20190101, end: 20210201
  2. PROTOPIC [Suspect]
     Active Substance: TACROLIMUS
     Indication: MULTIPLE ALLERGIES
     Dates: start: 20190101, end: 20210201

REACTIONS (8)
  - Herpes zoster [None]
  - Withdrawal syndrome [None]
  - Skin exfoliation [None]
  - Pain [None]
  - Discomfort [None]
  - Skin fissures [None]
  - Skin haemorrhage [None]
  - Dry skin [None]

NARRATIVE: CASE EVENT DATE: 20210202
